FAERS Safety Report 9116695 (Version 1)
Quarter: 2013Q1

REPORT INFORMATION
  Report Type: Spontaneous
  Country: US (occurrence: US)
  Receive Date: 20130225
  Receipt Date: 20130225
  Transmission Date: 20140127
  Serious: Yes (Other)
  Sender: FDA-Public Use
  Company Number: US-PFIZER INC-2013065590

PATIENT
  Age: 52 Year
  Sex: Male
  Weight: 90.7 kg

DRUGS (5)
  1. CELEBREX [Suspect]
     Indication: ARTHRITIS
     Dosage: 100 MG, 1X/DAY
     Route: 048
     Dates: start: 201112, end: 201210
  2. CELEBREX [Suspect]
     Indication: POSTOPERATIVE CARE
  3. CELEBREX [Suspect]
     Indication: PAIN
  4. LYRICA [Suspect]
     Indication: NEURALGIA
     Dosage: 75 MG, 2X/DAY
     Route: 048
     Dates: start: 201212
  5. LEXAPRO [Concomitant]
     Indication: DEPRESSION
     Dosage: 10 MG, 1X/DAY
     Route: 048

REACTIONS (7)
  - Intervertebral disc protrusion [Unknown]
  - Thrombosis [Unknown]
  - Drug ineffective [Unknown]
  - Joint swelling [Unknown]
  - Local swelling [Unknown]
  - Inflammation [Unknown]
  - Pain [Unknown]
